FAERS Safety Report 4775514-5 (Version None)
Quarter: 2005Q3

REPORT INFORMATION
  Report Type: 
  Country: None (occurrence: None)
  Receive Date: 20050922
  Receipt Date: 20050912
  Transmission Date: 20060218
  Serious: Yes (Death)
  Sender: FDA-Public Use
  Company Number: US-JNJFOC-20040702863

PATIENT
  Sex: Female
  Weight: 84.82 kg

DRUGS (20)
  1. INFLIXIMAB [Suspect]
     Indication: RHEUMATOID ARTHRITIS
     Route: 042
  2. GLUCOTROL XL [Concomitant]
  3. NEXIUM [Concomitant]
  4. TIZANIDINE HCL [Concomitant]
     Route: 048
  5. COUMADIN [Concomitant]
  6. PREDNISONE [Concomitant]
  7. TRAZODONE HCL [Concomitant]
  8. ENDOCET [Concomitant]
  9. ENDOCET [Concomitant]
  10. XANAX [Concomitant]
  11. REMERON [Concomitant]
  12. ALLEGRA [Concomitant]
  13. METHOTREXATE [Concomitant]
  14. FOSAMAX [Concomitant]
  15. FOLIC ACID [Concomitant]
  16. DURAGESIC-100 [Concomitant]
     Route: 062
  17. DURAGESIC-100 [Concomitant]
     Route: 062
  18. DURAGESIC-100 [Concomitant]
     Route: 062
  19. DURAGESIC-100 [Concomitant]
     Route: 062
  20. LEXAPRO [Concomitant]

REACTIONS (1)
  - DIABETES MELLITUS [None]
